FAERS Safety Report 18376409 (Version 7)
Quarter: 2021Q3

REPORT INFORMATION
  Report Type: Spontaneous
  Country: US (occurrence: US)
  Receive Date: 20201013
  Receipt Date: 20210720
  Transmission Date: 20211014
  Serious: Yes (Hospitalization)
  Sender: FDA-Public Use
  Company Number: US-TAKEDA-2020TUS042273

PATIENT
  Age: 63 Year
  Sex: Female
  Weight: 50.79 kg

DRUGS (3)
  1. NINLARO [Suspect]
     Active Substance: IXAZOMIB CITRATE
     Dosage: 2.3 MILLIGRAM
     Route: 048
     Dates: start: 20180712
  2. NINLARO [Suspect]
     Active Substance: IXAZOMIB CITRATE
     Indication: PLASMA CELL MYELOMA IN REMISSION
     Dosage: 3 MILLIGRAM
     Route: 048
  3. NINLARO [Suspect]
     Active Substance: IXAZOMIB CITRATE
     Dosage: 2.3 MILLIGRAM, 1/WEEK
     Route: 048
     Dates: start: 20200909

REACTIONS (8)
  - Rhinovirus infection [Unknown]
  - Chest pain [Unknown]
  - Pain in extremity [Unknown]
  - Balance disorder [Unknown]
  - Dysuria [Unknown]
  - Product dose omission issue [Unknown]
  - Nail discolouration [Unknown]
  - Asthenia [Unknown]

NARRATIVE: CASE EVENT DATE: 20210208
